FAERS Safety Report 15644245 (Version 1)
Quarter: 2018Q4

REPORT INFORMATION
  Report Type: Spontaneous
  Country: US (occurrence: US)
  Receive Date: 20181121
  Receipt Date: 20181121
  Transmission Date: 20190205
  Serious: Yes (Hospitalization)
  Sender: FDA-Public Use
  Company Number: None

PATIENT
  Sex: Female

DRUGS (12)
  1. OMEPRAZOLE. [Concomitant]
     Active Substance: OMEPRAZOLE
  2. HUMIRA [Suspect]
     Active Substance: ADALIMUMAB
     Indication: PSORIATIC ARTHROPATHY
     Dosage: ?          OTHER FREQUENCY:EVERY 3 WEEKS;?
     Route: 058
     Dates: start: 20140117
  3. SPIRONOLACT [Concomitant]
     Active Substance: SPIRONOLACTONE
  4. ASPIRIN. [Concomitant]
     Active Substance: ASPIRIN
  5. FLUTICASONE. [Concomitant]
     Active Substance: FLUTICASONE
  6. PRAVASTATIN. [Concomitant]
     Active Substance: PRAVASTATIN
  7. RESTASIS [Concomitant]
     Active Substance: CYCLOSPORINE
  8. METHOCARBAM [Concomitant]
     Active Substance: METHOCARBAMOL
  9. OXYCODONE [Concomitant]
     Active Substance: OXYCODONE
  10. ATORVASTATIN [Concomitant]
     Active Substance: ATORVASTATIN
  11. BISACODYL. [Concomitant]
     Active Substance: BISACODYL
  12. ASPIRIN. [Concomitant]
     Active Substance: ASPIRIN

REACTIONS (2)
  - Therapy cessation [None]
  - Knee arthroplasty [None]
